FAERS Safety Report 18621364 (Version 2)
Quarter: 2021Q1

REPORT INFORMATION
  Report Type: Spontaneous
  Country: US (occurrence: US)
  Receive Date: 20201216
  Receipt Date: 20210216
  Transmission Date: 20210419
  Serious: No
  Sender: FDA-Public Use
  Company Number: US-GE HEALTHCARE LIFE SCIENCES-2020CSU005285

PATIENT
  Age: 6 Year
  Sex: Female

DRUGS (2)
  1. ADREVIEW [Suspect]
     Active Substance: IOBENGUANE I-123
     Indication: DIAGNOSTIC PROCEDURE
     Dosage: 74 MBQ (2 MCI), ONCE
     Route: 042
     Dates: start: 20201013, end: 20201013
  2. ADREVIEW [Suspect]
     Active Substance: IOBENGUANE I-123
     Indication: NEOPLASM

REACTIONS (5)
  - Burning sensation [Recovered/Resolved]
  - Rash erythematous [Recovered/Resolved]
  - Injection site urticaria [Recovered/Resolved]
  - Crying [Recovered/Resolved]
  - Pallor [Recovered/Resolved]

NARRATIVE: CASE EVENT DATE: 20201013
